FAERS Safety Report 8546669-1 (Version None)
Quarter: 2012Q3

REPORT INFORMATION
  Report Type: 
  Country: None (occurrence: None)
  Receive Date: 20120727
  Receipt Date: 20120124
  Transmission Date: 20120928
  Serious: No
  Sender: FDA-Public Use
  Company Number: US-ASTRAZENECA-2012SE05190

PATIENT
  Age: 41 Year
  Sex: Male
  Weight: 113.4 kg

DRUGS (9)
  1. RISPERIDONE [Concomitant]
     Dates: start: 20110701
  2. SEROQUEL [Suspect]
     Indication: SCHIZOAFFECTIVE DISORDER
     Route: 048
     Dates: start: 20090101
  3. LAMOTRIGINE [Concomitant]
     Dosage: 25 MG IN THE MORNING AND 200 MG AT NIGHT
  4. SEROQUEL [Suspect]
     Indication: MANIA
     Route: 048
     Dates: start: 20090101
  5. LORAZEPAM [Concomitant]
     Dosage: 0.5 MG, ONE IN THE MORNING TWICE AT BEDTIME AS NEEDED
  6. TEMAZEPAM [Concomitant]
  7. LISINOPRIL [Concomitant]
  8. SIMVASTATIN [Concomitant]
  9. BENZTROPINE MESYLATE [Concomitant]

REACTIONS (3)
  - WRONG DRUG ADMINISTERED [None]
  - HALLUCINATION, AUDITORY [None]
  - DRUG DOSE OMISSION [None]
